FAERS Safety Report 5781245-5 (Version None)
Quarter: 2008Q2

REPORT INFORMATION
  Report Type: 
  Country: None (occurrence: None)
  Receive Date: 20080618
  Receipt Date: 20080602
  Transmission Date: 20081010
  Serious: Yes (Other)
  Sender: FDA-Public Use
  Company Number: 2008BI014029

PATIENT
  Age: 56 Year
  Sex: Female
  Weight: 72.5755 kg

DRUGS (10)
  1. TYSABRI [Suspect]
     Indication: MULTIPLE SCLEROSIS
     Dosage: 300 MG; QM; IV
     Route: 042
     Dates: start: 20080104
  2. LISINOPRIL [Concomitant]
  3. HYDROCHLORATHIZED [Concomitant]
  4. PAXIL [Concomitant]
  5. XANAX [Concomitant]
  6. BENTYL [Concomitant]
  7. CARAFATE [Concomitant]
  8. NEXIUM [Concomitant]
  9. BACLOFEN [Concomitant]
  10. DITROPAN [Concomitant]

REACTIONS (3)
  - AMNESIA [None]
  - CONDITION AGGRAVATED [None]
  - PETIT MAL EPILEPSY [None]
